FAERS Safety Report 11849097 (Version 1)
Quarter: 2015Q4

REPORT INFORMATION
  Report Type: Spontaneous
  Country: US (occurrence: None)
  Receive Date: 20151217
  Receipt Date: 20151217
  Transmission Date: 20160305
  Serious: Yes (Other)
  Sender: FDA-Public Use
  Company Number: None

PATIENT
  Age: 30 Year
  Sex: Female
  Weight: 68.7 kg

DRUGS (1)
  1. KETOROLAC TROMETHAMINE. [Suspect]
     Active Substance: KETOROLAC TROMETHAMINE
     Indication: PAIN
     Dates: start: 20150721, end: 20150721

REACTIONS (8)
  - Malaise [None]
  - Swelling face [None]
  - Rash [None]
  - Pain [None]
  - Headache [None]
  - Throat irritation [None]
  - Diarrhoea [None]
  - Urticaria [None]

NARRATIVE: CASE EVENT DATE: 20150724
